FAERS Safety Report 7089861-8 (Version None)
Quarter: 2010Q4

REPORT INFORMATION
  Report Type: 
  Country: None (occurrence: None)
  Receive Date: 20101108
  Receipt Date: 20101027
  Transmission Date: 20110411
  Serious: Yes (Other)
  Sender: FDA-Public Use
  Company Number: US-AMGEN-USASP2010000168

PATIENT

DRUGS (2)
  1. ENBREL [Suspect]
     Indication: RHEUMATOID ARTHRITIS
     Dosage: 50 MG, QWK
     Dates: start: 20100101, end: 20100101
  2. METHOTREXATE [Concomitant]

REACTIONS (3)
  - INJECTION SITE REACTION [None]
  - INJECTION SITE SWELLING [None]
  - OEDEMA PERIPHERAL [None]
